FAERS Safety Report 19311030 (Version 1)
Quarter: 2021Q2

REPORT INFORMATION
  Report Type: Report from Study
  Country: None (occurrence: US)
  Receive Date: 20210526
  Receipt Date: 20210526
  Transmission Date: 20210717
  Serious: Yes (Other)
  Sender: FDA-Public Use
  Company Number: US-ABBVIE-21K-163-3921479-00

PATIENT
  Sex: Female

DRUGS (2)
  1. HUMIRA [Suspect]
     Active Substance: ADALIMUMAB
     Indication: COLITIS ULCERATIVE
     Route: 058
  2. HUMIRA [Suspect]
     Active Substance: ADALIMUMAB
     Indication: CROHN^S DISEASE

REACTIONS (7)
  - Protein total increased [Unknown]
  - Blister [Recovering/Resolving]
  - Fall [Unknown]
  - Spinal osteoarthritis [Recovering/Resolving]
  - Tooth extraction [Unknown]
  - Spinal compression fracture [Recovering/Resolving]
  - Hypergammaglobulinaemia benign monoclonal [Recovering/Resolving]
